FAERS Safety Report 5079910-0 (Version None)
Quarter: 2006Q3

REPORT INFORMATION
  Report Type: 
  Country: None (occurrence: None)
  Receive Date: 20060815
  Receipt Date: 20060504
  Transmission Date: 20061208
  Serious: Yes (Other)
  Sender: FDA-Public Use
  Company Number: US-BAYER-200611904BCC

PATIENT
  Age: 80 Year
  Sex: Male
  Weight: 54 kg

DRUGS (5)
  1. GENUINE BAYER TABLETS [Suspect]
     Indication: ARTHRITIS
     Dosage: UNIT DOSE: 325 MG
     Route: 048
     Dates: start: 19760101, end: 19960101
  2. ISOSORBIDE DINITRATE [Concomitant]
  3. NITROGLYCERIN [Concomitant]
  4. ATENOLOL [Concomitant]
  5. PIROXICAM [Concomitant]

REACTIONS (2)
  - ATRIAL FIBRILLATION [None]
  - MYOCARDIAL INFARCTION [None]
